FAERS Safety Report 8069704-6 (Version None)
Quarter: 2012Q1

REPORT INFORMATION
  Report Type: 
  Country: None (occurrence: None)
  Receive Date: 20120125
  Receipt Date: 20120117
  Transmission Date: 20120608
  Serious: Yes (Other)
  Sender: FDA-Public Use
  Company Number: BR-PFIZER INC-2012013891

PATIENT
  Age: 94 Year
  Sex: Female

DRUGS (1)
  1. XALATAN [Suspect]
     Indication: GLAUCOMA
     Dosage: 3 UG, ONCE (1 GTT EACH EYE, ONCE)
     Route: 047
     Dates: start: 20020101

REACTIONS (1)
  - HEARING IMPAIRED [None]
